FAERS Safety Report 12592007 (Version 1)
Quarter: 2016Q3

REPORT INFORMATION
  Report Type: Spontaneous
  Country: US (occurrence: US)
  Receive Date: 20160726
  Receipt Date: 20160726
  Transmission Date: 20161109
  Serious: No
  Sender: FDA-Public Use
  Company Number: US-UNITED THERAPEUTICS-UNT-2016-002466

PATIENT
  Age: 11 Year
  Sex: Female
  Weight: 40.5 kg

DRUGS (4)
  1. LETAIRIS [Suspect]
     Active Substance: AMBRISENTAN
     Indication: PULMONARY HYPERTENSION
     Dosage: 5 MG, QD
     Route: 065
     Dates: start: 20150214
  2. LETAIRIS [Suspect]
     Active Substance: AMBRISENTAN
     Indication: HEART DISEASE CONGENITAL
  3. ADCIRCA [Suspect]
     Active Substance: TADALAFIL
     Indication: PRODUCT USED FOR UNKNOWN INDICATION
  4. REMODULIN [Suspect]
     Active Substance: TREPROSTINIL
     Indication: PULMONARY HYPERTENSION
     Dosage: 0.04583 ?G/KG, CONTINUING
     Route: 058
     Dates: start: 20151215

REACTIONS (7)
  - Infusion site induration [Unknown]
  - Tachycardia [Unknown]
  - Localised oedema [Unknown]
  - Infusion site discharge [Recovered/Resolved]
  - Infusion site oedema [Recovered/Resolved]
  - Local swelling [Unknown]
  - Pain of skin [Unknown]

NARRATIVE: CASE EVENT DATE: 201602
